FAERS Safety Report 22671735 (Version 3)
Quarter: 2024Q1

REPORT INFORMATION
  Report Type: Spontaneous
  Country: DE (occurrence: DE)
  Receive Date: 20230705
  Receipt Date: 20240311
  Transmission Date: 20240409
  Serious: Yes (Life-Threatening, Other)
  Sender: FDA-Public Use
  Company Number: DE-PFIZER INC-PV202300114917

PATIENT
  Age: 60 Year
  Sex: Male

DRUGS (23)
  1. LEUCOVORIN CALCIUM [Suspect]
     Active Substance: LEUCOVORIN CALCIUM
     Indication: Colorectal cancer
     Dosage: 400 MG/M2, CYCLIC
     Dates: start: 201611, end: 201704
  2. LEUCOVORIN CALCIUM [Suspect]
     Active Substance: LEUCOVORIN CALCIUM
     Dosage: 400 MG/M2, CYCLIC
     Dates: start: 201705, end: 201711
  3. LEUCOVORIN CALCIUM [Suspect]
     Active Substance: LEUCOVORIN CALCIUM
     Dosage: 400 MG/M2, CYCLIC
     Dates: start: 201801, end: 201810
  4. LEUCOVORIN CALCIUM [Suspect]
     Active Substance: LEUCOVORIN CALCIUM
     Dosage: 400 MG/M2, CYCLIC
     Dates: start: 201810, end: 201903
  5. LEUCOVORIN CALCIUM [Suspect]
     Active Substance: LEUCOVORIN CALCIUM
     Dosage: 400 MG/M2, CYCLIC
     Dates: start: 201904, end: 201904
  6. IRINOTECAN HYDROCHLORIDE [Suspect]
     Active Substance: IRINOTECAN HYDROCHLORIDE
     Indication: Colorectal cancer
     Dosage: 180 MG/M2, CYCLIC
     Dates: start: 201611, end: 201704
  7. IRINOTECAN HYDROCHLORIDE [Suspect]
     Active Substance: IRINOTECAN HYDROCHLORIDE
     Dosage: 180 MG/M2, CYCLIC
     Dates: start: 201801, end: 201810
  8. IRINOTECAN HYDROCHLORIDE [Suspect]
     Active Substance: IRINOTECAN HYDROCHLORIDE
     Dosage: 180 MG/M2, CYCLIC
     Dates: start: 201904, end: 201904
  9. FLUOROURACIL [Suspect]
     Active Substance: FLUOROURACIL
     Indication: Colorectal cancer
     Dosage: 2400 MG/M2, CYCLIC (EVERY 2 WEEKS)
     Route: 042
     Dates: start: 201611, end: 201704
  10. FLUOROURACIL [Suspect]
     Active Substance: FLUOROURACIL
     Dosage: 400 MG/M2, BOLUS (EVERY 2 WEEKS)
     Route: 041
     Dates: start: 201611, end: 201704
  11. FLUOROURACIL [Suspect]
     Active Substance: FLUOROURACIL
     Dosage: 2400 MG/M2, CYCLIC (EVERY 2 WEEKS)
     Route: 042
     Dates: start: 201705, end: 201711
  12. FLUOROURACIL [Suspect]
     Active Substance: FLUOROURACIL
     Dosage: 2400 MG/M2, CYCLIC (EVERY 2 WEEKS)
     Route: 042
     Dates: start: 201801, end: 201810
  13. FLUOROURACIL [Suspect]
     Active Substance: FLUOROURACIL
     Dosage: 400 MG/M2, BOLUS (EVERY 2 WEEKS)
     Route: 041
     Dates: start: 201801, end: 201810
  14. FLUOROURACIL [Suspect]
     Active Substance: FLUOROURACIL
     Dosage: 2400 MG/M2, CYCLIC (EVERY 2 WEEKS)
     Route: 042
     Dates: start: 201810, end: 201903
  15. FLUOROURACIL [Suspect]
     Active Substance: FLUOROURACIL
     Dosage: 2400 MG/M2, CYCLIC (EVERY 2 WEEKS)
     Route: 042
     Dates: start: 201904, end: 201904
  16. FLUOROURACIL [Suspect]
     Active Substance: FLUOROURACIL
     Dosage: 400 MG/M2, BOLUS (EVERY 2 WEEKS)
     Route: 041
     Dates: start: 201904, end: 201904
  17. FLUOROURACIL [Suspect]
     Active Substance: FLUOROURACIL
     Dosage: UNK
  18. BEVACIZUMAB [Suspect]
     Active Substance: BEVACIZUMAB
     Indication: Colorectal cancer
     Dosage: 5 MG/KG, CYCLIC (EVERY 2 WEEKS)
     Dates: start: 201611, end: 201704
  19. BEVACIZUMAB [Suspect]
     Active Substance: BEVACIZUMAB
     Dosage: UNK
     Dates: start: 201705, end: 201711
  20. BEVACIZUMAB [Suspect]
     Active Substance: BEVACIZUMAB
     Dosage: 5 MG/KG, CYCLIC (EVERY 2 WEEKS)
     Dates: start: 201801, end: 201810
  21. BEVACIZUMAB [Suspect]
     Active Substance: BEVACIZUMAB
     Dosage: UNK
     Dates: start: 201810, end: 201903
  22. BEVACIZUMAB [Suspect]
     Active Substance: BEVACIZUMAB
     Dosage: 5 MG/KG, CYCLIC (EVERY 2 WEEKS)
     Dates: start: 201904, end: 201904
  23. DEXAMETHASONE [Concomitant]
     Active Substance: DEXAMETHASONE
     Dosage: UNK

REACTIONS (1)
  - Vascular device infection [Unknown]
